FAERS Safety Report 6352916-7 (Version None)
Quarter: 2009Q3

REPORT INFORMATION
  Report Type: 
  Country: None (occurrence: None)
  Receive Date: 20090912
  Receipt Date: 20090622
  Transmission Date: 20100115
  Serious: No
  Sender: FDA-Public Use
  Company Number: US-ABBOTT-08P-163-0449546-00

PATIENT
  Sex: Female
  Weight: 59.02 kg

DRUGS (4)
  1. HUMIRA [Suspect]
     Indication: RHEUMATOID ARTHRITIS
     Route: 058
     Dates: start: 20080411
  2. BIRTH CONTROL [Concomitant]
     Indication: CONTRACEPTION
     Route: 048
  3. FOLIC ACID [Concomitant]
     Indication: RHEUMATOID ARTHRITIS
     Route: 048
     Dates: start: 20040101
  4. METHOTREXATE [Concomitant]
     Indication: RHEUMATOID ARTHRITIS
     Dosage: 8 TABLETS ONCE WEEK
     Route: 048
     Dates: start: 20040201

REACTIONS (1)
  - DRUG DELIVERY SYSTEM MALFUNCTION [None]
